FAERS Safety Report 24385164 (Version 9)
Quarter: 2025Q2

REPORT INFORMATION
  Report Type: Report from Study
  Country: US (occurrence: US)
  Receive Date: 20241001
  Receipt Date: 20250429
  Transmission Date: 20250717
  Serious: No
  Sender: SUNOVION
  Company Number: US-SUMITOMO PHARMA SWITZERLAND GMBH-2024SPA000186

PATIENT

DRUGS (4)
  1. ORGOVYX [Suspect]
     Active Substance: RELUGOLIX
     Indication: Prostate cancer
     Dosage: 120 MG, QD
     Route: 048
     Dates: start: 20240605
  2. ERLEADA [Suspect]
     Active Substance: APALUTAMIDE
     Route: 065
  3. CARAFATE [Concomitant]
     Active Substance: SUCRALFATE
     Indication: Abdominal pain upper
     Route: 065
  4. TUMS [Concomitant]
     Active Substance: CALCIUM CARBONATE
     Route: 065

REACTIONS (25)
  - Urinary retention [Unknown]
  - Nocturia [Unknown]
  - Dehydration [Unknown]
  - Head discomfort [Unknown]
  - Palpitations [Unknown]
  - Bowel movement irregularity [Unknown]
  - White blood cell count decreased [Unknown]
  - Chest pain [Unknown]
  - Gastrooesophageal reflux disease [Unknown]
  - Tenderness [Unknown]
  - Flatulence [Recovering/Resolving]
  - Chills [Unknown]
  - Rhinorrhoea [Unknown]
  - Aggression [Unknown]
  - Blood pressure increased [Unknown]
  - Somnolence [Unknown]
  - Abdominal pain upper [Unknown]
  - Dizziness [Unknown]
  - Headache [Unknown]
  - Hyperhidrosis [Unknown]
  - Hot flush [Unknown]
  - Arthralgia [Unknown]
  - Insomnia [Unknown]
  - Fatigue [Unknown]
  - Incorrect dose administered [Unknown]

NARRATIVE: CASE EVENT DATE: 20241101
